FAERS Safety Report 4816875-8 (Version None)
Quarter: 2005Q4

REPORT INFORMATION
  Report Type: 
  Country: None (occurrence: None)
  Receive Date: 20051031
  Receipt Date: 20051031
  Transmission Date: 20060501
  Serious: Yes (Hospitalization)
  Sender: FDA-Public Use
  Company Number: None

PATIENT
  Age: 55 Year
  Sex: Male

DRUGS (8)
  1. AMITRIPTYLINE HCL [Suspect]
     Indication: DEPRESSION
     Dosage: 25 MG QID
     Dates: start: 19991001
  2. ARIPIPRAZOLE [Suspect]
     Indication: SCHIZOPHRENIA
     Dosage: 12 MG QD
     Dates: start: 20050501
  3. GUAIFENESIN [Concomitant]
  4. TEMAZEPAM [Concomitant]
  5. ESGIC [Concomitant]
  6. BUSPIRONE HCL [Concomitant]
  7. SIMETHICONE- [Concomitant]
  8. HYOSCYAMIN [Concomitant]

REACTIONS (1)
  - HYPONATRAEMIA [None]
